FAERS Safety Report 7128307-8 (Version None)
Quarter: 2010Q4

REPORT INFORMATION
  Report Type: 
  Country: None (occurrence: None)
  Receive Date: 20101130
  Receipt Date: 20101119
  Transmission Date: 20110411
  Serious: Yes (Hospitalization, Other)
  Sender: FDA-Public Use
  Company Number: PHHY2010BR27336

PATIENT
  Age: 67 Year
  Sex: Female

DRUGS (7)
  1. RASILEZ [Suspect]
     Dosage: 300 MG, UNK
  2. TELMISARTAN AND HYDROCHLOROTHIAZIDE [Suspect]
     Dosage: UNK
  3. ATENOLOL [Suspect]
     Dosage: UNK
  4. ASPIRIN [Suspect]
     Dosage: UNK
  5. ROSUVASTATIN [Suspect]
     Dosage: UNK
  6. CLOPIDOGREL [Suspect]
     Dosage: UNK
  7. NIFEDIPINE [Suspect]
     Dosage: UNK

REACTIONS (1)
  - PANCREATITIS ACUTE [None]
